FAERS Safety Report 18947640 (Version 3)
Quarter: 2021Q1

REPORT INFORMATION
  Report Type: Report from Study
  Country: PL (occurrence: PL)
  Receive Date: 20210226
  Receipt Date: 20210319
  Transmission Date: 20210420
  Serious: Yes (Hospitalization)
  Sender: FDA-Public Use
  Company Number: PL-EXELIXIS-XL18421037835

PATIENT
  Age: 43 Year
  Sex: Male
  Weight: 118 kg

DRUGS (11)
  1. NIVOLUMAB [Suspect]
     Active Substance: NIVOLUMAB
     Indication: RENAL CELL CARCINOMA
     Dosage: 3 MG/KG, Q3WEEKS, 4 DOSES
     Route: 042
     Dates: start: 20200702
  2. BISOCARD [Concomitant]
     Active Substance: BISOPROLOL
  3. BLINDED XL184 [Suspect]
     Active Substance: CABOZANTINIB
     Indication: RENAL CELL CARCINOMA
     Dosage: 40 MG, QD
     Route: 048
     Dates: start: 20200702
  4. THIOGAMMA [Concomitant]
     Active Substance: .ALPHA.-LIPOIC ACID
  5. IPILIMUMAB [Suspect]
     Active Substance: IPILIMUMAB
     Indication: RENAL CELL CARCINOMA
     Dosage: 1 MG/KG, Q3WEEKS, 4 DOSES
     Route: 042
     Dates: start: 20200702
  6. LIPANTHYL [Concomitant]
     Active Substance: FENOFIBRATE
  7. CYCLONAMINE [Concomitant]
     Active Substance: ETHAMSYLATE
  8. NIVOLUMAB [Suspect]
     Active Substance: NIVOLUMAB
     Dosage: 480 MG, Q4WEEKS, FLAT DOSE
     Route: 042
  9. OMACOR [Concomitant]
     Active Substance: OMEGA-3-ACID ETHYL ESTERS
  10. NAXALGAN [Concomitant]
  11. PLACEBO [Suspect]
     Active Substance: UNSPECIFIED INGREDIENT
     Indication: RENAL CELL CARCINOMA
     Dosage: 40 MG, QD
     Route: 048
     Dates: start: 20200702

REACTIONS (1)
  - Haemoptysis [Recovered/Resolved]

NARRATIVE: CASE EVENT DATE: 20210207
